FAERS Safety Report 7402936-6 (Version None)
Quarter: 2011Q2

REPORT INFORMATION
  Report Type: 
  Country: None (occurrence: None)
  Receive Date: 20110408
  Receipt Date: 20101230
  Transmission Date: 20111010
  Serious: No
  Sender: FDA-Public Use
  Company Number: US-NOVEN-10US001502

PATIENT
  Sex: Female

DRUGS (1)
  1. FENTANYL [Suspect]
     Indication: PRODUCT USED FOR UNKNOWN INDICATION
     Dosage: 100 UG, Q72HRS
     Route: 062
     Dates: start: 20101101, end: 20101228

REACTIONS (5)
  - APPLICATION SITE IRRITATION [None]
  - MALAISE [None]
  - APPLICATION SITE RASH [None]
  - APPLICATION SITE VESICLES [None]
  - PYREXIA [None]
